FAERS Safety Report 7601686-0 (Version None)
Quarter: 2011Q3

REPORT INFORMATION
  Report Type: 
  Country: None (occurrence: None)
  Receive Date: 20110711
  Receipt Date: 20110630
  Transmission Date: 20111222
  Serious: Yes (Hospitalization)
  Sender: FDA-Public Use
  Company Number: FI-ASTRAZENECA-2011SE39603

PATIENT
  Age: 545 Month
  Sex: Female

DRUGS (4)
  1. ATACAND HCT [Suspect]
     Indication: HYPERTENSION
     Route: 048
     Dates: start: 20090101, end: 20110329
  2. MIGARD [Suspect]
     Indication: MIGRAINE
     Route: 048
     Dates: start: 20080101, end: 20110404
  3. ATACAND [Suspect]
     Indication: HYPERTENSION
     Route: 048
  4. MIRENA [Suspect]
     Indication: HORMONE REPLACEMENT THERAPY
     Route: 015
     Dates: start: 20070101, end: 20110404

REACTIONS (4)
  - MIGRAINE [None]
  - HYPERALDOSTERONISM [None]
  - DRUG INEFFECTIVE [None]
  - HYPERTENSION [None]
